FAERS Safety Report 21895307 (Version 1)
Quarter: 2023Q1

REPORT INFORMATION
  Report Type: Report from Study
  Country: US (occurrence: US)
  Receive Date: 20230123
  Receipt Date: 20230123
  Transmission Date: 20230418
  Serious: Yes (Hospitalization)
  Sender: FDA-Public Use
  Company Number: US-ABBVIE-4277514

PATIENT
  Sex: Male

DRUGS (1)
  1. RINVOQ [Suspect]
     Active Substance: UPADACITINIB
     Indication: Product used for unknown indication
     Route: 048
     Dates: start: 20221217

REACTIONS (4)
  - Condition aggravated [Recovering/Resolving]
  - Abdominal pain [Recovering/Resolving]
  - Haematochezia [Not Recovered/Not Resolved]
  - Frequent bowel movements [Recovering/Resolving]
